FAERS Safety Report 7545697-2 (Version None)
Quarter: 2011Q2

REPORT INFORMATION
  Report Type: 
  Country: None (occurrence: None)
  Receive Date: 20110614
  Receipt Date: 20110601
  Transmission Date: 20111010
  Serious: Yes (Life-Threatening)
  Sender: FDA-Public Use
  Company Number: JP-SANOFI-AVENTIS-2011SA036036

PATIENT
  Age: 64 Year
  Sex: Male

DRUGS (2)
  1. MYTELASE [Suspect]
     Indication: MYASTHENIA GRAVIS
     Dosage: 15 MG (`NUMBER OF DOSES DIVIDED INTO? NOT PROVIDED).
     Route: 048
     Dates: start: 20100501, end: 20110501
  2. SANCOBA [Concomitant]
     Route: 047

REACTIONS (2)
  - ASTHENIA [None]
  - MUSCULAR WEAKNESS [None]
